FAERS Safety Report 6700323-7 (Version None)
Quarter: 2010Q2

REPORT INFORMATION
  Report Type: 
  Country: None (occurrence: None)
  Receive Date: 20100428
  Receipt Date: 20100419
  Transmission Date: 20101027
  Serious: Yes (Other)
  Sender: FDA-Public Use
  Company Number: US-SANOFI-AVENTIS-2010SA023479

PATIENT
  Age: 75 Year
  Sex: Female

DRUGS (5)
  1. MULTAQ [Suspect]
     Indication: ATRIAL FIBRILLATION
     Route: 048
     Dates: start: 20100301
  2. ALDACTONE [Concomitant]
  3. COUMADIN [Concomitant]
     Indication: THROMBOSIS PROPHYLAXIS
  4. AMITRIPTYLINE [Concomitant]
     Dates: start: 19800101, end: 20100401
  5. LEVAQUIN [Concomitant]
     Indication: PNEUMONIA
     Dates: start: 19900101

REACTIONS (9)
  - ABNORMAL DREAMS [None]
  - COUGH [None]
  - DIARRHOEA [None]
  - FALL [None]
  - FATIGUE [None]
  - INSOMNIA [None]
  - OEDEMA PERIPHERAL [None]
  - PERICARDITIS [None]
  - WEIGHT INCREASED [None]
